FAERS Safety Report 6656860-7 (Version None)
Quarter: 2010Q1

REPORT INFORMATION
  Report Type: 
  Country: None (occurrence: None)
  Receive Date: 20100329
  Receipt Date: 20100329
  Transmission Date: 20100710
  Serious: Yes (Other)
  Sender: FDA-Public Use
  Company Number: None

PATIENT
  Age: 57 Year
  Sex: Female
  Weight: 49.8957 kg

DRUGS (1)
  1. LORAZEPAM [Suspect]
     Indication: ANXIETY
     Dosage: 1/4 MG. TWICE DAILY PO
     Route: 048
     Dates: start: 20090430, end: 20090630

REACTIONS (4)
  - DIZZINESS [None]
  - HEARING IMPAIRED [None]
  - INSOMNIA [None]
  - WITHDRAWAL SYNDROME [None]
